FAERS Safety Report 16757737 (Version 1)
Quarter: 2019Q3

REPORT INFORMATION
  Report Type: Spontaneous
  Country: US (occurrence: US)
  Receive Date: 20190830
  Receipt Date: 20190830
  Transmission Date: 20191005
  Serious: Yes (Other)
  Sender: FDA-Public Use
  Company Number: US-TEVA-2019-US-1101765

PATIENT
  Sex: Male

DRUGS (1)
  1. AJOVY [Suspect]
     Active Substance: FREMANEZUMAB-VFRM
     Indication: MIGRAINE
     Route: 065

REACTIONS (6)
  - Feeling hot [Unknown]
  - Generalised erythema [Unknown]
  - Sunburn [Recovered/Resolved]
  - Rash erythematous [Unknown]
  - Cellulitis [Unknown]
  - Injection site erythema [Unknown]
